FAERS Safety Report 16579442 (Version 1)
Quarter: 2019Q3

REPORT INFORMATION
  Report Type: Report from Study
  Country: DE (occurrence: DE)
  Receive Date: 20190716
  Receipt Date: 20190716
  Transmission Date: 20191004
  Serious: Yes (Hospitalization)
  Sender: FDA-Public Use
  Company Number: DE-BAXTER-2019BAX013746

PATIENT
  Age: 16 Year
  Sex: Male
  Weight: 55 kg

DRUGS (3)
  1. ETOPOSIDE. [Suspect]
     Active Substance: ETOPOSIDE
     Indication: OSTEOSARCOMA RECURRENT
     Dosage: LAST DOSE 09DEC2018 PRIOR TO THE EVENT, ON DAYS 1-3 OF EVERY 21-DAY CYCLE
     Route: 042
     Dates: start: 20181207, end: 20181209
  2. HOLOXAN [Suspect]
     Active Substance: IFOSFAMIDE
     Indication: OSTEOSARCOMA RECURRENT
     Dosage: LAST DOSE 09DEC2018 PRIOR TO THE EVENT, ON DAYS 1-3 OF EVERY 21-DAY CYCLE, (E7080)
     Route: 042
     Dates: start: 20181207, end: 20181209
  3. LENVATINIB [Suspect]
     Active Substance: LENVATINIB
     Indication: OSTEOSARCOMA RECURRENT
     Dosage: LAST DOSE 09DEC2018 PRIOR TO THE EVENT,
     Route: 048
     Dates: start: 20181207, end: 20181209

REACTIONS (2)
  - Nausea [Recovered/Resolved]
  - Dehydration [Recovered/Resolved]

NARRATIVE: CASE EVENT DATE: 20181213
